FAERS Safety Report 15059121 (Version 1)
Quarter: 2018Q2

REPORT INFORMATION
  Report Type: Spontaneous
  Country: JP (occurrence: JP)
  Receive Date: 20180625
  Receipt Date: 20180625
  Transmission Date: 20180711
  Serious: Yes (Other)
  Sender: FDA-Public Use
  Company Number: PHHY2018JP022832

PATIENT
  Age: 84 Year
  Sex: Female

DRUGS (2)
  1. CILOSTAZOL. [Suspect]
     Active Substance: CILOSTAZOL
     Indication: ARTERIOSCLEROSIS CORONARY ARTERY
     Dosage: 100 MG, QD
     Route: 065
  2. DULOXETINE. [Suspect]
     Active Substance: DULOXETINE
     Indication: OSTEOARTHRITIS
     Dosage: 40 MG, QD
     Route: 065

REACTIONS (3)
  - Long QT syndrome [Recovering/Resolving]
  - Ventricular fibrillation [Recovered/Resolved]
  - Loss of consciousness [Unknown]
